FAERS Safety Report 5633448-8 (Version None)
Quarter: 2008Q1

REPORT INFORMATION
  Report Type: 
  Country: None (occurrence: None)
  Receive Date: 20080221
  Receipt Date: 20080207
  Transmission Date: 20080703
  Serious: Yes (Death)
  Sender: FDA-Public Use
  Company Number: US-TYCO HEALTHCARE/MALLINCKRODT-T200800158

PATIENT

DRUGS (6)
  1. RESTORIL [Suspect]
     Indication: DRUG USE FOR UNKNOWN INDICATION
  2. OXYCONTIN [Suspect]
     Indication: DRUG USE FOR UNKNOWN INDICATION
  3. VICODIN [Suspect]
     Indication: DRUG USE FOR UNKNOWN INDICATION
  4. VALIUM [Suspect]
     Indication: DRUG USE FOR UNKNOWN INDICATION
  5. XANAX [Suspect]
     Indication: DRUG USE FOR UNKNOWN INDICATION
  6. UNISOM [Suspect]
     Indication: DRUG USE FOR UNKNOWN INDICATION

REACTIONS (1)
  - DRUG TOXICITY [None]
